FAERS Safety Report 18776408 (Version 1)
Quarter: 2021Q1

REPORT INFORMATION
  Report Type: Spontaneous
  Country: US (occurrence: US)
  Receive Date: 20210122
  Receipt Date: 20210122
  Transmission Date: 20210419
  Serious: Yes (Other)
  Sender: FDA-Public Use
  Company Number: US-ASTRAZENECA-2021A008645

PATIENT
  Sex: Female

DRUGS (6)
  1. LYRICA [Concomitant]
     Active Substance: PREGABALIN
     Dosage: LOWER DOSE
  2. LYNPARZA [Suspect]
     Active Substance: OLAPARIB
     Indication: OVARIAN CANCER
     Route: 048
  3. LYNPARZA [Suspect]
     Active Substance: OLAPARIB
     Indication: OVARIAN CANCER
     Route: 048
  4. LYRICA [Concomitant]
     Active Substance: PREGABALIN
     Dosage: INCREASED DOSE
  5. CELEBREX [Concomitant]
     Active Substance: CELECOXIB
  6. BUTRANS [Concomitant]
     Active Substance: BUPRENORPHINE

REACTIONS (8)
  - Carbohydrate antigen 125 increased [Not Recovered/Not Resolved]
  - Gait disturbance [Unknown]
  - Diplopia [Unknown]
  - Vision blurred [Unknown]
  - Oropharyngeal pain [Not Recovered/Not Resolved]
  - Dizziness [Unknown]
  - Cataract [Unknown]
  - Bone pain [Unknown]
